FAERS Safety Report 8911732 (Version 1)
Quarter: 2012Q4

REPORT INFORMATION
  Report Type: 
  Country: US (occurrence: US)
  Receive Date: 20121116
  Receipt Date: 20121116
  Transmission Date: 20130627
  Serious: No
  Sender: FDA-Public Use
  Company Number: US-PFIZER INC-2012284301

PATIENT
  Age: 59 Year
  Sex: Female
  Weight: 60.77 kg

DRUGS (1)
  1. ESTRING [Suspect]
     Indication: VAGINAL DRYNESS
     Dosage: UNK
     Dates: start: 20121102, end: 20121110

REACTIONS (1)
  - Nausea [Recovered/Resolved]
